FAERS Safety Report 9013657 (Version 1)
Quarter: 2013Q1

REPORT INFORMATION
  Report Type: Spontaneous
  Country: US (occurrence: None)
  Receive Date: 20130109
  Receipt Date: 20130109
  Transmission Date: 20140127
  Serious: Yes (Hospitalization)
  Sender: FDA-Public Use
  Company Number: None

PATIENT
  Age: 61 Year
  Sex: Male
  Weight: 55.7 kg

DRUGS (2)
  1. HYDROCHLOROTHIAZIDE/LISINOPRIL [Suspect]
     Indication: HYPERTENSION
     Dosage: 25/40 MG EVERY DAY PO
     Route: 048
     Dates: start: 20120731, end: 20130106
  2. CIPROFLOXACIN [Suspect]
     Indication: INFECTION
     Dosage: 500 MG BID PO
     Route: 048
     Dates: start: 20130104, end: 20130105

REACTIONS (1)
  - Angioedema [None]
